FAERS Safety Report 7209464-1 (Version None)
Quarter: 2011Q1

REPORT INFORMATION
  Report Type: 
  Country: None (occurrence: None)
  Receive Date: 20110104
  Receipt Date: 20101229
  Transmission Date: 20110831
  Serious: Yes (Hospitalization)
  Sender: FDA-Public Use
  Company Number: US-AMGEN-USASP2010012214

PATIENT

DRUGS (1)
  1. ENBREL [Suspect]
     Indication: RHEUMATOID ARTHRITIS
     Dates: start: 20100223, end: 20101101

REACTIONS (12)
  - ARTHRALGIA [None]
  - VOMITING [None]
  - PAIN [None]
  - DIARRHOEA [None]
  - COUGH [None]
  - PYREXIA [None]
  - MIGRAINE [None]
  - COLD SWEAT [None]
  - NAUSEA [None]
  - ERYTHEMA [None]
  - JOINT RANGE OF MOTION DECREASED [None]
  - RASH MACULAR [None]
